FAERS Safety Report 15863767 (Version 1)
Quarter: 2019Q1

REPORT INFORMATION
  Report Type: Spontaneous
  Country: US (occurrence: US)
  Receive Date: 20190124
  Receipt Date: 20190124
  Transmission Date: 20190417
  Serious: No
  Sender: FDA-Public Use
  Company Number: US-ENDO PHARMACEUTICALS INC-2018-039605

PATIENT
  Sex: Male
  Weight: 73.92 kg

DRUGS (1)
  1. TESTOSTERONE. [Suspect]
     Active Substance: TESTOSTERONE
     Indication: BLOOD TESTOSTERONE DECREASED
     Dosage: 50 MG (5 PUMPS), DAILY
     Route: 061
     Dates: start: 2014

REACTIONS (4)
  - Product dose omission [Unknown]
  - Product container issue [Unknown]
  - Product administered at inappropriate site [Unknown]
  - Blood testosterone decreased [Unknown]

NARRATIVE: CASE EVENT DATE: 2018
